FAERS Safety Report 22144479 (Version 1)
Quarter: 2023Q1

REPORT INFORMATION
  Report Type: Spontaneous
  Country: FR (occurrence: FR)
  Receive Date: 20230328
  Receipt Date: 20230328
  Transmission Date: 20230417
  Serious: Yes (Congenital Anomaly)
  Sender: FDA-Public Use
  Company Number: FR-ABBVIE-4706477

PATIENT

DRUGS (1)
  1. DEPAKOTE [Suspect]
     Active Substance: DIVALPROEX SODIUM
     Indication: Bipolar disorder
     Route: 064
     Dates: end: 20230302

REACTIONS (1)
  - Congenital musculoskeletal disorder of limbs [Not Recovered/Not Resolved]

NARRATIVE: CASE EVENT DATE: 20230306
